FAERS Safety Report 7901130-X (Version None)
Quarter: 2011Q4

REPORT INFORMATION
  Report Type: 
  Country: None (occurrence: None)
  Receive Date: 20111108
  Receipt Date: 20111028
  Transmission Date: 20120403
  Serious: Yes (Other)
  Sender: FDA-Public Use
  Company Number: JP-PFIZER INC-2011271969

PATIENT
  Age: 79 Year
  Sex: Male
  Weight: 75 kg

DRUGS (7)
  1. CAMPTOSAR [Suspect]
     Indication: COLORECTAL CANCER
     Dosage: 270 MG/BODY (148.4 MG/M2), CYCLIC
     Route: 041
     Dates: start: 20110126, end: 20110208
  2. LEVOLEUCOVORIN CALCIUM [Concomitant]
     Indication: COLORECTAL CANCER
     Dosage: 350 MG/BODY (192.3 MG/M2), CYCLIC
     Route: 041
     Dates: start: 20110126, end: 20110802
  3. FLUOROURACIL [Concomitant]
     Dosage: 640 MG/BODY (351.6 MG/M2), CYCLIC
     Route: 040
     Dates: start: 20110301, end: 20110802
  4. CAMPTOSAR [Suspect]
     Dosage: 200 MG/BODY (109.9 MG/M2), CYCLIC
     Route: 041
     Dates: start: 20110301, end: 20110802
  5. FLUOROURACIL [Concomitant]
     Dosage: 4300 MG/BODY/D1-2 (2362.6 MG/M2/D1-2), CYCLIC
     Route: 041
     Dates: start: 20110126, end: 20110208
  6. FLUOROURACIL [Concomitant]
     Dosage: 3600 MG/BODY/D1-2 (1978 MG/M2/D1-2), CYCLIC
     Route: 041
     Dates: start: 20110301, end: 20110802
  7. FLUOROURACIL [Concomitant]
     Indication: COLORECTAL CANCER
     Dosage: 720 MG/BODY (395.6 MG/M2), CYCLIC
     Route: 040
     Dates: start: 20110126, end: 20110208

REACTIONS (2)
  - NEUTROPENIA [None]
  - HYPOAESTHESIA [None]
